FAERS Safety Report 7349602-3 (Version None)
Quarter: 2011Q1

REPORT INFORMATION
  Report Type: 
  Country: None (occurrence: None)
  Receive Date: 20110314
  Receipt Date: 20110304
  Transmission Date: 20110831
  Serious: Yes (Other)
  Sender: FDA-Public Use
  Company Number: DE-ASTRAZENECA-2011SE12508

PATIENT

DRUGS (1)
  1. IRESSA [Suspect]
     Route: 048
     Dates: start: 20100101

REACTIONS (1)
  - PERICARDIAL EFFUSION [None]
